FAERS Safety Report 4802092-4 (Version None)
Quarter: 2005Q4

REPORT INFORMATION
  Report Type: 
  Country: None (occurrence: None)
  Receive Date: 20051012
  Receipt Date: 20051004
  Transmission Date: 20060501
  Serious: Yes (Life-Threatening, Hospitalization)
  Sender: FDA-Public Use
  Company Number: VISP-PR-0510S-0519

PATIENT
  Age: 50 Year
  Sex: Female

DRUGS (1)
  1. VISIPAQUE [Suspect]
     Indication: MEDICAL DEVICE COMPLICATION
     Dosage: SINGLE DOSE, I.V.
     Route: 042
     Dates: start: 20050711, end: 20050711

REACTIONS (1)
  - PANCREATITIS NECROTISING [None]
